FAERS Safety Report 23033719 (Version 2)
Quarter: 2023Q4

REPORT INFORMATION
  Report Type: Spontaneous
  Country: US (occurrence: US)
  Receive Date: 20231005
  Receipt Date: 20231016
  Transmission Date: 20240109
  Serious: Yes (Other)
  Sender: FDA-Public Use
  Company Number: US-TEVA-2023-US-2930632

PATIENT
  Sex: Female

DRUGS (4)
  1. DOXYCYCLINE [Suspect]
     Active Substance: DOXYCYCLINE
     Indication: Dry eye
     Dosage: 50 MILLIGRAM DAILY;
     Route: 048
  2. ESTROGENS [Suspect]
     Active Substance: ESTROGENS
     Indication: Uterine leiomyoma
     Route: 065
  3. CYCLOSPORINE [Concomitant]
     Active Substance: CYCLOSPORINE
     Indication: Dry eye
     Route: 061
  4. PROGESTERONE [Concomitant]
     Active Substance: PROGESTERONE
     Indication: Uterine leiomyoma
     Route: 048

REACTIONS (2)
  - Dry eye [Recovering/Resolving]
  - Gastrointestinal disorder [Unknown]
